FAERS Safety Report 7953146-5 (Version None)
Quarter: 2011Q4

REPORT INFORMATION
  Report Type: 
  Country: None (occurrence: None)
  Receive Date: 20111201
  Receipt Date: 20111122
  Transmission Date: 20120403
  Serious: Yes (Hospitalization)
  Sender: FDA-Public Use
  Company Number: BR-ASTRAZENECA-2011SE71426

PATIENT
  Sex: Female

DRUGS (2)
  1. SEROQUEL XR [Suspect]
     Route: 048
     Dates: start: 20110901
  2. CLONAZEPAM [Concomitant]
     Route: 048

REACTIONS (4)
  - APPARENT DEATH [None]
  - SOMNOLENCE [None]
  - FEAR [None]
  - HEART RATE INCREASED [None]
